FAERS Safety Report 4951676-1 (Version None)
Quarter: 2006Q1

REPORT INFORMATION
  Report Type: 
  Country: None (occurrence: None)
  Receive Date: 20060322
  Receipt Date: 20060322
  Transmission Date: 20060701
  Serious: Yes (Other)
  Sender: FDA-Public Use
  Company Number: None

PATIENT
  Age: 50 Year
  Sex: Female
  Weight: 86.1834 kg

DRUGS (2)
  1. AMBIEN [Suspect]
     Indication: DEPRESSION
     Dosage: 5 OR 10 MG   NIGHTLY   PO
     Route: 048
     Dates: start: 20040101, end: 20060321
  2. AMBIEN [Suspect]
     Indication: FIBROMYALGIA
     Dosage: 5 OR 10 MG   NIGHTLY   PO
     Route: 048
     Dates: start: 20040101, end: 20060321

REACTIONS (6)
  - ABNORMAL SLEEP-RELATED EVENT [None]
  - AMNESIA [None]
  - DISINHIBITION [None]
  - EATING DISORDER [None]
  - HALLUCINATION, VISUAL [None]
  - SLEEP WALKING [None]
